FAERS Safety Report 8094180-7 (Version None)
Quarter: 2012Q1

REPORT INFORMATION
  Report Type: 
  Country: None (occurrence: None)
  Receive Date: 20120130
  Receipt Date: 20120130
  Transmission Date: 20120608
  Serious: Yes (Other)
  Sender: FDA-Public Use
  Company Number: None

PATIENT
  Age: 23 Year
  Sex: Female
  Weight: 51.255 kg

DRUGS (2)
  1. CIPROFLOXACIN [Suspect]
     Indication: SINUSITIS
     Dosage: 1 TABLET
     Route: 048
     Dates: start: 20120122, end: 20120123
  2. CIPROFLOXACIN [Suspect]
     Indication: URINARY TRACT INFECTION
     Dosage: 1 TABLET
     Route: 048
     Dates: start: 20120122, end: 20120123

REACTIONS (7)
  - HEART RATE IRREGULAR [None]
  - ANXIETY [None]
  - IRRITABILITY [None]
  - MUSCLE TWITCHING [None]
  - PARANOIA [None]
  - DEPRESSION [None]
  - LETHARGY [None]
